FAERS Safety Report 7355658-4 (Version None)
Quarter: 2011Q1

REPORT INFORMATION
  Report Type: 
  Country: None (occurrence: None)
  Receive Date: 20110316
  Receipt Date: 20110217
  Transmission Date: 20110831
  Serious: No
  Sender: FDA-Public Use
  Company Number: US-B.I. PHARMACEUTICALS,INC./RIDGEFIELD-2011-BP-06000BP

PATIENT
  Sex: Male

DRUGS (11)
  1. FUROSEMIDE [Concomitant]
  2. PRADAXA [Suspect]
     Indication: ATRIAL FIBRILLATION
     Dosage: 300 MG
     Route: 048
     Dates: start: 20110101
  3. QUINAPRIL [Concomitant]
  4. SIMVASTATIN [Concomitant]
  5. ALLOPURINOL [Concomitant]
     Indication: GOUT
  6. OMEGA XL [Concomitant]
     Indication: INTERVERTEBRAL DISC PROTRUSION
  7. MAGNESIUM [Concomitant]
  8. POTASSIUM [Concomitant]
  9. COLCHICINE [Concomitant]
     Indication: GOUT
  10. ASPIRIN [Concomitant]
  11. METOLAZONE [Concomitant]

REACTIONS (2)
  - DYSGEUSIA [None]
  - CHEST DISCOMFORT [None]
